FAERS Safety Report 12266194 (Version 1)
Quarter: 2016Q2

REPORT INFORMATION
  Report Type: Spontaneous
  Country: US (occurrence: None)
  Receive Date: 20160413
  Receipt Date: 20160413
  Transmission Date: 20160815
  Serious: No
  Sender: FDA-Public Use
  Company Number: None

PATIENT
  Age: 41 Year
  Sex: Female
  Weight: 71.67 kg

DRUGS (1)
  1. PARAGARD T 380A [Suspect]
     Active Substance: COPPER

REACTIONS (11)
  - Metrorrhagia [None]
  - Back pain [None]
  - Menorrhagia [None]
  - Endometrial thickening [None]
  - Anger [None]
  - Depression [None]
  - Smear cervix abnormal [None]
  - Endometritis [None]
  - Anxiety [None]
  - Dyspareunia [None]
  - Abdominal pain [None]

NARRATIVE: CASE EVENT DATE: 20150108
